FAERS Safety Report 18046085 (Version 1)
Quarter: 2020Q3

REPORT INFORMATION
  Report Type: Spontaneous
  Country: TR (occurrence: TR)
  Receive Date: 20200721
  Receipt Date: 20200721
  Transmission Date: 20201103
  Serious: Yes (Life-Threatening, Hospitalization, Other)
  Sender: FDA-Public Use
  Company Number: TR-MACLEODS PHARMACEUTICALS US LTD-MAC2020027317

PATIENT

DRUGS (1)
  1. METFORMIN [Suspect]
     Active Substance: METFORMIN HYDROCHLORIDE
     Indication: SUICIDE ATTEMPT
     Dosage: 100 DOSAGE FORM, SINGLE, 100 TABLETS OF 1000 MG METFORMIN
     Route: 065

REACTIONS (11)
  - Toxicity to various agents [Recovered/Resolved]
  - Pneumonia [Unknown]
  - Renal failure [Unknown]
  - Hypotension [Recovered/Resolved]
  - Hypothermia [Recovered/Resolved]
  - Loss of consciousness [Recovered/Resolved]
  - Hyperkalaemia [Recovered/Resolved]
  - Lactic acidosis [Recovered/Resolved]
  - Thrombocytopenia [Unknown]
  - Coma [Recovered/Resolved]
  - Intentional overdose [Recovered/Resolved]
